FAERS Safety Report 16306567 (Version 5)
Quarter: 2022Q4

REPORT INFORMATION
  Report Type: Spontaneous
  Country: US (occurrence: None)
  Receive Date: 20190513
  Receipt Date: 20221010
  Transmission Date: 20230112
  Serious: Yes (Hospitalization, Other)
  Sender: FDA-Public Use
  Company Number: 2019SE63759

PATIENT
  Age: 42 Year
  Sex: Female
  Weight: 136.1 kg

DRUGS (33)
  1. PRILOSEC [Suspect]
     Active Substance: OMEPRAZOLE MAGNESIUM
     Indication: Gastrooesophageal reflux disease
     Route: 048
  2. PRILOSEC [Suspect]
     Active Substance: OMEPRAZOLE MAGNESIUM
     Indication: Gastrooesophageal reflux disease
     Route: 048
     Dates: start: 2000, end: 2010
  3. PANTOPRAZOLE [Suspect]
     Active Substance: PANTOPRAZOLE
     Indication: Gastrooesophageal reflux disease
     Dosage: GENERIC
     Route: 065
     Dates: start: 201101
  4. KETOROLAC [Concomitant]
     Active Substance: KETOROLAC TROMETHAMINE
     Indication: Pain
  5. NAPROXEN [Concomitant]
     Active Substance: NAPROXEN
     Indication: Pain
  6. TRAMADOL [Concomitant]
     Active Substance: TRAMADOL
     Indication: Pain
  7. AZITHROMYCIN [Concomitant]
     Active Substance: AZITHROMYCIN
     Indication: Antibiotic therapy
  8. CEPHALEXIN [Concomitant]
     Active Substance: CEPHALEXIN
     Indication: Antibiotic therapy
  9. CIPROFLOXACIN [Concomitant]
     Active Substance: CIPROFLOXACIN
     Indication: Antibiotic therapy
  10. DOXYCYCLINE [Concomitant]
     Active Substance: DOXYCYCLINE
     Indication: Antibiotic therapy
  11. ATORVASTATIN [Concomitant]
     Active Substance: ATORVASTATIN
     Indication: Blood cholesterol abnormal
  12. ROSUVASTATIN [Concomitant]
     Active Substance: ROSUVASTATIN
     Indication: Blood cholesterol abnormal
  13. SIMVASTATIN [Concomitant]
     Active Substance: SIMVASTATIN
     Indication: Blood cholesterol abnormal
  14. TAGAMET [Concomitant]
     Active Substance: CIMETIDINE
  15. ZANTAC [Concomitant]
     Active Substance: RANITIDINE HYDROCHLORIDE
  16. PEPCID [Concomitant]
     Active Substance: FAMOTIDINE
  17. MAALOX ANTACID [Concomitant]
     Active Substance: ALUMINUM HYDROXIDE\DIMETHICONE\MAGNESIUM HYDROXIDE
  18. MYLANTA [Concomitant]
     Active Substance: ALUMINUM HYDROXIDE\DIMETHICONE\MAGNESIUM HYDROXIDE
  19. GAVISCON [Concomitant]
     Active Substance: ALUMINUM HYDROXIDE\MAGNESIUM CARBONATE
  20. SULFAMETHOXAZOLE [Concomitant]
     Active Substance: SULFAMETHOXAZOLE
     Indication: Antibiotic therapy
  21. AMITRIPTYLINE [Concomitant]
     Active Substance: AMITRIPTYLINE
  22. PREMARIN [Concomitant]
     Active Substance: ESTROGENS, CONJUGATED
  23. ACETAMINOPHEN\DICHLORALPHENAZONE\ISOMETHEPTENE [Concomitant]
     Active Substance: ACETAMINOPHEN\DICHLORALPHENAZONE\ISOMETHEPTENE
  24. PRINIVIL [Concomitant]
     Active Substance: LISINOPRIL
  25. FUROSEMIDE [Concomitant]
     Active Substance: FUROSEMIDE
  26. NEXIUM [Concomitant]
     Active Substance: ESOMEPRAZOLE MAGNESIUM
  27. IMITREX [Concomitant]
     Active Substance: SUMATRIPTAN SUCCINATE
  28. ALTACE [Concomitant]
     Active Substance: RAMIPRIL
  29. TAZTIA XT [Concomitant]
     Active Substance: DILTIAZEM HYDROCHLORIDE
  30. HYDROXYZINE [Concomitant]
     Active Substance: HYDROXYZINE HYDROCHLORIDE
  31. TOPAMAX [Concomitant]
     Active Substance: TOPIRAMATE
  32. TOPAMAX [Concomitant]
     Active Substance: TOPIRAMATE
  33. DEMEROL [Concomitant]
     Active Substance: MEPERIDINE HYDROCHLORIDE

REACTIONS (3)
  - Chronic kidney disease [Not Recovered/Not Resolved]
  - Renal failure [Unknown]
  - Gastrooesophageal reflux disease [Not Recovered/Not Resolved]

NARRATIVE: CASE EVENT DATE: 20020101
